FAERS Safety Report 25771349 (Version 1)
Quarter: 2025Q3

REPORT INFORMATION
  Report Type: Spontaneous
  Country: US (occurrence: US)
  Receive Date: 20250908
  Receipt Date: 20250908
  Transmission Date: 20251020
  Serious: No
  Sender: DOMPE FARMACEUTICI
  Company Number: US-FARMAPROD-202504-1208

PATIENT
  Sex: Male
  Weight: 127.91 kg

DRUGS (21)
  1. OXERVATE [Suspect]
     Active Substance: CENEGERMIN-BKBJ
     Indication: Neurotrophic keratopathy
     Route: 047
     Dates: start: 20250402
  2. VITAMIN E [Concomitant]
     Active Substance: .ALPHA.-TOCOPHEROL
  3. VITAMIN C [Concomitant]
     Active Substance: ASCORBIC ACID
  4. POTASSIUM [Concomitant]
     Active Substance: POTASSIUM
  5. D3-5000 [Concomitant]
  6. LEVOTHYROXINE SODIUM [Concomitant]
     Active Substance: LEVOTHYROXINE SODIUM
  7. ASPIRIN [Concomitant]
     Active Substance: ASPIRIN
  8. MAGNESIUM OXIDE [Concomitant]
     Active Substance: MAGNESIUM OXIDE
  9. MONTELUKAST SODIUM [Concomitant]
     Active Substance: MONTELUKAST SODIUM
  10. PRAMIPEXOLE DIHYDROCHLORIDE [Concomitant]
     Active Substance: PRAMIPEXOLE DIHYDROCHLORIDE
  11. BACLOFEN [Concomitant]
     Active Substance: BACLOFEN
  12. ACETAMINOPHEN [Concomitant]
     Active Substance: ACETAMINOPHEN
  13. IBUPROFEN [Concomitant]
     Active Substance: IBUPROFEN
  14. HYDROCHLOROTHIAZIDE [Concomitant]
     Active Substance: HYDROCHLOROTHIAZIDE
  15. LISINOPRIL [Concomitant]
     Active Substance: LISINOPRIL
  16. ZYRTEC [Concomitant]
     Active Substance: CETIRIZINE HYDROCHLORIDE
  17. ATORVASTATIN CALCIUM [Concomitant]
     Active Substance: ATORVASTATIN CALCIUM
  18. NISOLDIPINE [Concomitant]
     Active Substance: NISOLDIPINE
  19. METFORMIN HYDROCHLORIDE [Concomitant]
     Active Substance: METFORMIN HYDROCHLORIDE
  20. FAMOTIDINE [Concomitant]
     Active Substance: FAMOTIDINE
  21. OFLOXACIN [Concomitant]
     Active Substance: OFLOXACIN

REACTIONS (4)
  - Foreign body sensation in eyes [Not Recovered/Not Resolved]
  - Eye pain [Not Recovered/Not Resolved]
  - Eye irritation [Not Recovered/Not Resolved]
  - Weight decreased [Not Recovered/Not Resolved]
